FAERS Safety Report 24428083 (Version 3)
Quarter: 2024Q4

REPORT INFORMATION
  Report Type: Spontaneous
  Country: CN (occurrence: CN)
  Receive Date: 20241011
  Receipt Date: 20241030
  Transmission Date: 20250115
  Serious: Yes (Hospitalization, Other)
  Sender: PFIZER
  Company Number: CN-MLMSERVICE-20241002-PI216756-00263-1

PATIENT
  Age: 50 Year
  Sex: Female

DRUGS (1)
  1. PIPERACILLIN SODIUM\TAZOBACTAM SODIUM [Suspect]
     Active Substance: PIPERACILLIN SODIUM\TAZOBACTAM SODIUM
     Indication: Pneumonia
     Dosage: 4.5 G, 3X/DAY
     Dates: start: 202306, end: 202307

REACTIONS (13)
  - Blood fibrinogen decreased [Recovered/Resolved]
  - Neutrophil count decreased [Unknown]
  - Prothrombin time prolonged [Recovered/Resolved]
  - Hepatic enzyme increased [Recovered/Resolved]
  - C-reactive protein increased [Recovered/Resolved]
  - Platelet count decreased [Recovered/Resolved]
  - White blood cell count decreased [Unknown]
  - Procalcitonin decreased [Recovered/Resolved]
  - Activated partial thromboplastin time prolonged [Recovered/Resolved]
  - Pyrexia [Recovered/Resolved]
  - Ecchymosis [Unknown]
  - Blood lactate dehydrogenase increased [Recovered/Resolved]
  - Fibrin D dimer increased [Recovered/Resolved]
